FAERS Safety Report 11626760 (Version 1)
Quarter: 2015Q4

REPORT INFORMATION
  Report Type: Spontaneous
  Country: US (occurrence: US)
  Receive Date: 20151013
  Receipt Date: 20151013
  Transmission Date: 20160304
  Serious: Yes (Death)
  Sender: FDA-Public Use
  Company Number: US-CELGENE-USA-2015103028

PATIENT

DRUGS (4)
  1. RUXOLITINIB [Concomitant]
     Active Substance: RUXOLITINIB
     Indication: MYELOFIBROSIS
     Route: 048
  2. VIDAZA [Suspect]
     Active Substance: AZACITIDINE
     Route: 050
  3. VIDAZA [Suspect]
     Active Substance: AZACITIDINE
     Indication: MYELOFIBROSIS
     Route: 050
  4. RUXOLITINIB [Concomitant]
     Active Substance: RUXOLITINIB
     Route: 048

REACTIONS (1)
  - Acute myeloid leukaemia [Fatal]
